FAERS Safety Report 17956902 (Version 1)
Quarter: 2020Q2

REPORT INFORMATION
  Report Type: Report from Study
  Country: CA (occurrence: CA)
  Receive Date: 20200629
  Receipt Date: 20200629
  Transmission Date: 20200714
  Serious: Yes (Other)
  Sender: FDA-Public Use
  Company Number: CA-PFIZER INC-2020246323

PATIENT
  Sex: Female
  Weight: 79 kg

DRUGS (14)
  1. DIPHENHYDRAMINE HYDROCHLORIDE. [Concomitant]
     Active Substance: DIPHENHYDRAMINE HYDROCHLORIDE
     Dosage: 50 MG
     Route: 048
  2. FOLIC ACID. [Concomitant]
     Active Substance: FOLIC ACID
  3. RABEPRAZOLE [Concomitant]
     Active Substance: RABEPRAZOLE
  4. VENTOLIN [Concomitant]
     Active Substance: ALBUTEROL SULFATE
  5. RITUXIMAB. [Suspect]
     Active Substance: RITUXIMAB
     Indication: RHEUMATOID ARTHRITIS
     Dosage: 1000 MG (1 EVERY 2 WEEKS)
     Route: 042
  6. BUDESONIDE. [Concomitant]
     Active Substance: BUDESONIDE
  7. VERAPAMIL [Concomitant]
     Active Substance: VERAPAMIL HYDROCHLORIDE
  8. ATACAND [Concomitant]
     Active Substance: CANDESARTAN CILEXETIL
  9. PREDNISONE. [Concomitant]
     Active Substance: PREDNISONE
     Indication: PREMEDICATION
  10. METHOTREXATE SODIUM. [Suspect]
     Active Substance: METHOTREXATE SODIUM
     Indication: PAIN
     Dosage: 25 MG
     Route: 065
  11. ACETAMINOPHEN. [Concomitant]
     Active Substance: ACETAMINOPHEN
     Indication: PREMEDICATION
     Dosage: 650 MG
     Route: 048
  12. HYDROXYCHLOROQUINE [Concomitant]
     Active Substance: HYDROXYCHLOROQUINE
  13. PANTOPRAZOLE MAGNESIUM [Concomitant]
     Active Substance: PANTOPRAZOLE MAGNESIUM
  14. PANTOLOC [PANTOPRAZOLE] [Concomitant]
     Active Substance: PANTOPRAZOLE SODIUM

REACTIONS (8)
  - Accidental overdose [Unknown]
  - Urinary tract infection [Unknown]
  - Pneumonia [Unknown]
  - Stress [Unknown]
  - Kidney infection [Unknown]
  - Nausea [Unknown]
  - Weight increased [Unknown]
  - Gastric disorder [Unknown]
